FAERS Safety Report 12959150 (Version 2)
Quarter: 2017Q1

REPORT INFORMATION
  Report Type: Spontaneous
  Country: US (occurrence: US)
  Receive Date: 20161121
  Receipt Date: 20170314
  Transmission Date: 20170428
  Serious: No
  Sender: FDA-Public Use
  Company Number: US-JNJFOC-20161026270

PATIENT
  Sex: Male

DRUGS (17)
  1. IMBRUVICA [Suspect]
     Active Substance: IBRUTINIB
     Indication: CHRONIC LYMPHOCYTIC LEUKAEMIA
     Route: 048
     Dates: start: 20150915, end: 20161020
  2. MEVACOR [Concomitant]
     Active Substance: LOVASTATIN
  3. EFFEXOR [Concomitant]
     Active Substance: VENLAFAXINE HYDROCHLORIDE
  4. VITAMIN C [Concomitant]
     Active Substance: ASCORBIC ACID
  5. LOPRESSOR [Concomitant]
     Active Substance: METOPROLOL TARTRATE
  6. OMEPRAZOLE. [Concomitant]
     Active Substance: OMEPRAZOLE
  7. BACTRIM [Concomitant]
     Active Substance: SULFAMETHOXAZOLE\TRIMETHOPRIM
  8. ZYLOPRIM [Concomitant]
     Active Substance: ALLOPURINOL
  9. PEPCID [Concomitant]
     Active Substance: FAMOTIDINE
  10. LOVASTATIN. [Concomitant]
     Active Substance: LOVASTATIN
  11. ASPIRIN. [Concomitant]
     Active Substance: ASPIRIN
  12. ACYCLOVIR. [Concomitant]
     Active Substance: ACYCLOVIR
  13. FAMOTIDINE. [Concomitant]
     Active Substance: FAMOTIDINE
  14. ZOVIRAX [Concomitant]
     Active Substance: ACYCLOVIR
  15. IMBRUVICA [Suspect]
     Active Substance: IBRUTINIB
     Indication: CHRONIC LYMPHOCYTIC LEUKAEMIA
     Route: 048
  16. VENLAFAXINE [Concomitant]
     Active Substance: VENLAFAXINE HYDROCHLORIDE
  17. FISH OIL [Concomitant]
     Active Substance: FISH OIL

REACTIONS (3)
  - Oral mucosal eruption [Not Recovered/Not Resolved]
  - Weight increased [Not Recovered/Not Resolved]
  - Rash [Unknown]

NARRATIVE: CASE EVENT DATE: 2015
